FAERS Safety Report 19085146 (Version 1)
Quarter: 2021Q2

REPORT INFORMATION
  Report Type: Spontaneous
  Country: US (occurrence: US)
  Receive Date: 20210402
  Receipt Date: 20210402
  Transmission Date: 20210717
  Serious: No
  Sender: FDA-Public Use
  Company Number: US-SA-2021SA109791

PATIENT
  Age: 35 Year
  Sex: Male

DRUGS (1)
  1. AUBAGIO [Suspect]
     Active Substance: TERIFLUNOMIDE
     Indication: MULTIPLE SCLEROSIS
     Dosage: 14 MG, QD
     Dates: start: 201912

REACTIONS (9)
  - Pain in extremity [Unknown]
  - Fatigue [Unknown]
  - Vomiting [Unknown]
  - Hypoaesthesia [Unknown]
  - Chest discomfort [Unknown]
  - Unevaluable event [Unknown]
  - Feeling hot [Unknown]
  - Feeling abnormal [Unknown]
  - Asthenia [Unknown]

NARRATIVE: CASE EVENT DATE: 202102
